FAERS Safety Report 4334839-8 (Version None)
Quarter: 2004Q2

REPORT INFORMATION
  Report Type: 
  Country: None (occurrence: None)
  Receive Date: 20040405
  Receipt Date: 20031027
  Transmission Date: 20050107
  Serious: Yes (Disabling)
  Sender: FDA-Public Use
  Company Number: 2003SE04893

PATIENT
  Age: 53 Year
  Sex: Female

DRUGS (4)
  1. MARCAINE HCL W/ EPINEPHRINE [Suspect]
     Indication: HYSTEROSALPINGO-OOPHORECTOMY
     Dates: start: 19990817, end: 19990817
  2. MARCAINE HCL W/ EPINEPHRINE [Suspect]
     Indication: SALPINGECTOMY
     Dates: start: 19990817, end: 19990817
  3. CARBOCAINE [Suspect]
     Indication: HYSTEROSALPINGO-OOPHORECTOMY
     Dates: start: 19990817, end: 19990817
  4. CARBOCAINE [Suspect]
     Indication: SALPINGECTOMY
     Dates: start: 19990817, end: 19990817

REACTIONS (12)
  - ANAESTHETIC COMPLICATION [None]
  - ATONIC URINARY BLADDER [None]
  - CAUDA EQUINA SYNDROME [None]
  - HAEMANGIOMA [None]
  - HEPATIC CYST [None]
  - INTERVERTEBRAL DISC PROTRUSION [None]
  - INTRANEURAL CYST [None]
  - PAIN [None]
  - PERIPHERAL NERVE INJURY [None]
  - POST PROCEDURAL COMPLICATION [None]
  - SWELLING [None]
  - URINARY TRACT INFECTION [None]
